FAERS Safety Report 7551470-1 (Version None)
Quarter: 2011Q2

REPORT INFORMATION
  Report Type: 
  Country: None (occurrence: None)
  Receive Date: 20110616
  Receipt Date: 20110607
  Transmission Date: 20111010
  Serious: Yes (Hospitalization, Other)
  Sender: FDA-Public Use
  Company Number: US-AMGEN-USASP2011022282

PATIENT
  Age: 81 Year
  Sex: Female

DRUGS (1)
  1. ENBREL [Suspect]
     Indication: RHEUMATOID ARTHRITIS
     Dosage: 50 MG, QWK
     Route: 058
     Dates: start: 20010101

REACTIONS (8)
  - THROMBOSIS [None]
  - DYSPHAGIA [None]
  - GAIT DISTURBANCE [None]
  - CHONDROPATHY [None]
  - APHONIA [None]
  - POST PROCEDURAL INFECTION [None]
  - STREPTOCOCCAL INFECTION [None]
  - FUNGAL INFECTION [None]
